FAERS Safety Report 9311791 (Version 4)
Quarter: 2013Q3

REPORT INFORMATION
  Report Type: Spontaneous
  Country: JP (occurrence: JP)
  Receive Date: 20130528
  Receipt Date: 20130822
  Transmission Date: 20140515
  Serious: Yes (Death)
  Sender: FDA-Public Use
  Company Number: PHHY2013JP053041

PATIENT
  Age: 77 Year
  Sex: Male
  Weight: 50 kg

DRUGS (10)
  1. RASILEZ [Suspect]
     Indication: HYPERTENSION
     Dosage: 150 MG, BID
     Route: 048
     Dates: start: 20110606, end: 20130518
  2. DIOVAN [Concomitant]
     Indication: HYPERTENSION
     Dosage: 160 MG, UNK
     Route: 048
     Dates: start: 20090105, end: 20130518
  3. POLARAMINE [Concomitant]
     Indication: SEASONAL ALLERGY
     Dosage: UNK
     Route: 048
     Dates: start: 20081113, end: 20130518
  4. ADALAT L [Concomitant]
     Indication: HYPERTENSION
     Dosage: 60 MG, UNK
     Route: 048
     Dates: start: 20080821, end: 20130518
  5. ROCALTROL [Concomitant]
     Indication: RENAL FAILURE
     Dosage: 0.25 UG, UNK
     Route: 048
     Dates: start: 20081215, end: 20130518
  6. RENAGEL [Concomitant]
     Indication: HYPERPHOSPHATAEMIA
     Dosage: 1500 MG, UNK
     Route: 048
     Dates: start: 20090420, end: 20130518
  7. JUVELA N [Concomitant]
     Indication: HYPOAESTHESIA
     Dosage: 300 MG, UNK
     Route: 048
     Dates: start: 20090515, end: 20130518
  8. LAXOBERON [Concomitant]
     Indication: CONSTIPATION
     Dosage: 10 DF, UNK
     Route: 048
     Dates: start: 20091026, end: 20130518
  9. PARIET [Concomitant]
     Indication: GASTRIC HAEMORRHAGE
     Dosage: 10 MG, UNK
     Route: 048
     Dates: start: 20130405, end: 20130518
  10. GOODMIN [Concomitant]
     Indication: INSOMNIA
     Dosage: 0.25 MG, UNK
     Route: 048
     Dates: start: 20120808, end: 20130518

REACTIONS (3)
  - Peritonitis [Fatal]
  - Abdominal pain [Fatal]
  - Wrong technique in drug usage process [Unknown]
